FAERS Safety Report 7021399-6 (Version None)
Quarter: 2010Q3

REPORT INFORMATION
  Report Type: 
  Country: None (occurrence: None)
  Receive Date: 20100929
  Receipt Date: 20100916
  Transmission Date: 20110219
  Serious: No
  Sender: FDA-Public Use
  Company Number: US-PFIZER INC-2010117888

PATIENT
  Sex: Male
  Weight: 72.574 kg

DRUGS (4)
  1. LYRICA [Suspect]
     Indication: NEUROPATHY PERIPHERAL
     Dosage: 150 MG, 3X/DAY
     Route: 048
  2. HYDROXYUREA [Concomitant]
     Dosage: UNK
  3. DICYCLOMINE [Concomitant]
     Dosage: UNK
  4. VALIUM [Concomitant]
     Dosage: UNK

REACTIONS (1)
  - OEDEMA PERIPHERAL [None]
